FAERS Safety Report 20538197 (Version 1)
Quarter: 2022Q1

REPORT INFORMATION
  Report Type: Spontaneous
  Country: US (occurrence: US)
  Receive Date: 20220302
  Receipt Date: 20220302
  Transmission Date: 20220423
  Serious: Yes (Other)
  Sender: FDA-Public Use
  Company Number: US-LUPIN PHARMACEUTICALS INC.-2022-02621

PATIENT
  Age: 15 Year
  Sex: Female

DRUGS (4)
  1. NADOLOL [Suspect]
     Active Substance: NADOLOL
     Indication: Ventricular extrasystoles
     Dosage: 20 MG, STARTING DOSE
     Route: 065
  2. NADOLOL [Suspect]
     Active Substance: NADOLOL
     Indication: Ventricular tachycardia
     Dosage: 40 MG, QD
     Route: 065
  3. FLECAINIDE [Concomitant]
     Active Substance: FLECAINIDE
     Indication: Ventricular extrasystoles
     Dosage: 75 MG, BID
     Route: 065
  4. FLECAINIDE [Concomitant]
     Active Substance: FLECAINIDE
     Indication: Ventricular tachycardia

REACTIONS (1)
  - Drug ineffective [Unknown]
